FAERS Safety Report 17584726 (Version 2)
Quarter: 2020Q4

REPORT INFORMATION
  Report Type: Spontaneous
  Country: GB (occurrence: GB)
  Receive Date: 20200326
  Receipt Date: 20201210
  Transmission Date: 20210113
  Serious: Yes (Other)
  Sender: FDA-Public Use
  Company Number: GB-MYLANLABS-2020M1033076

PATIENT
  Sex: Male
  Weight: 73 kg

DRUGS (4)
  1. CASSIA SENNA [Concomitant]
     Active Substance: HERBALS\SENNOSIDES
     Dosage: UNK
  2. CLOZARIL [Suspect]
     Active Substance: CLOZAPINE
     Dosage: UNK
     Route: 048
  3. HYOSCINE [Concomitant]
     Active Substance: SCOPOLAMINE
     Dosage: UNK
  4. CLOZARIL [Suspect]
     Active Substance: CLOZAPINE
     Indication: PRODUCT USED FOR UNKNOWN INDICATION
     Dosage: 150 MILLIGRAM
     Route: 048
     Dates: start: 20200214

REACTIONS (4)
  - Loss of consciousness [Unknown]
  - General physical condition abnormal [Not Recovered/Not Resolved]
  - Paralysis [Unknown]
  - Suspected product tampering [Unknown]

NARRATIVE: CASE EVENT DATE: 20200214
